FAERS Safety Report 10155076 (Version 1)
Quarter: 2014Q2

REPORT INFORMATION
  Report Type: Spontaneous
  Country: US (occurrence: None)
  Receive Date: 20140505
  Receipt Date: 20140505
  Transmission Date: 20141212
  Serious: No
  Sender: FDA-Public Use
  Company Number: None

PATIENT
  Age: 29 Year
  Sex: Male
  Weight: 113.4 kg

DRUGS (2)
  1. VIIBRYD 10 MG, 20 MG , 40 MG FOREST PHARMACEUTICALS [Suspect]
     Indication: MAJOR DEPRESSION
     Dosage: 1 PILL ONCE DAILY TAKEN BY MOUTH
     Dates: start: 20140503, end: 20140504
  2. VIIBRYD 10 MG, 20 MG , 40 MG FOREST PHARMACEUTICALS [Suspect]
     Indication: ANXIETY
     Dosage: 1 PILL ONCE DAILY TAKEN BY MOUTH
     Dates: start: 20140503, end: 20140504

REACTIONS (3)
  - Diarrhoea [None]
  - Fatigue [None]
  - Lethargy [None]
